FAERS Safety Report 17346308 (Version 1)
Quarter: 2020Q1

REPORT INFORMATION
  Report Type: Report from Study
  Country: US (occurrence: US)
  Receive Date: 20200129
  Receipt Date: 20200129
  Transmission Date: 20200409
  Serious: No
  Sender: FDA-Public Use
  Company Number: US-EXELIXIS-CABO-19021621

PATIENT
  Sex: Male
  Weight: 70.3 kg

DRUGS (2)
  1. CABOMETYX [Suspect]
     Active Substance: CABOZANTINIB S-MALATE
     Indication: DIFFUSE LARGE B-CELL LYMPHOMA STAGE I
  2. CABOMETYX [Suspect]
     Active Substance: CABOZANTINIB S-MALATE
     Indication: RENAL CELL CARCINOMA STAGE IV
     Dosage: 40 MG, UNK

REACTIONS (8)
  - Diarrhoea [Unknown]
  - Constipation [Unknown]
  - Metastases to stomach [Unknown]
  - Thyroid hormones decreased [Unknown]
  - Decreased appetite [Unknown]
  - Nausea [Unknown]
  - Insomnia [Unknown]
  - Fatigue [Unknown]
